FAERS Safety Report 18574509 (Version 1)
Quarter: 2020Q4

REPORT INFORMATION
  Report Type: Report from Study
  Country: US (occurrence: US)
  Receive Date: 20201203
  Receipt Date: 20201203
  Transmission Date: 20210114
  Serious: Yes (Hospitalization)
  Sender: FDA-Public Use
  Company Number: US-MYLANLABS-2020M1098994

PATIENT
  Age: 11 Year

DRUGS (1)
  1. DUONEB [Suspect]
     Active Substance: ALBUTEROL SULFATE\IPRATROPIUM BROMIDE
     Indication: STATUS ASTHMATICUS
     Dosage: THREE DOSES
     Route: 065

REACTIONS (3)
  - Sinus arrhythmia [Recovered/Resolved]
  - Electrocardiogram T wave inversion [Recovered/Resolved]
  - Electrocardiogram QT prolonged [Recovered/Resolved]
